FAERS Safety Report 8450599-3 (Version None)
Quarter: 2012Q2

REPORT INFORMATION
  Report Type: 
  Country: None (occurrence: None)
  Receive Date: 20120620
  Receipt Date: 20120615
  Transmission Date: 20120825
  Serious: Yes (Other)
  Sender: FDA-Public Use
  Company Number: PHHY2012AU042574

PATIENT
  Sex: Female
  Weight: 85 kg

DRUGS (7)
  1. GLIPIZIDE [Concomitant]
     Dosage: 5 MG, (HALF A TABLET EVERY MORNING AND HALF A TABLET AT NIGHT)
     Route: 048
  2. PERINDOPRIL ERBUMINE [Concomitant]
     Dosage: 10 MG, EVERY MORNING
     Route: 048
  3. LEVOTHYROXINE SODIUM [Concomitant]
     Dosage: 0.05 MG, (HALF A TABLET EVERY MORNING)
     Route: 048
  4. ZOCOR [Concomitant]
     Dosage: 10 MG, (HALF A TABLET DAILY)
  5. ZOLEDRONOC ACID [Suspect]
     Dosage: 5 MG, UNK
     Route: 042
     Dates: start: 20110520
  6. ACTOS [Concomitant]
     Dosage: 15 MG, EVERY MORNING
     Route: 048
  7. PANTOPRAZOLE [Concomitant]
     Dosage: 40 MG, (HALF A TABLET EVERY MORNING)

REACTIONS (3)
  - FATIGUE [None]
  - DIZZINESS [None]
  - PRESYNCOPE [None]
